FAERS Safety Report 15609219 (Version 1)
Quarter: 2018Q4

REPORT INFORMATION
  Report Type: Spontaneous
  Country: US (occurrence: US)
  Receive Date: 20181112
  Receipt Date: 20181112
  Transmission Date: 20190205
  Serious: No
  Sender: FDA-Public Use
  Company Number: US-MIST-TIR-2018-0853

PATIENT
  Age: 66 Year
  Sex: Female

DRUGS (3)
  1. TIROSINT [Suspect]
     Active Substance: LEVOTHYROXINE SODIUM
     Dosage: ONE 75MCG CAPSULE DAILY AND TWO 50MCG CAPSULES A WEEK
     Route: 048
     Dates: start: 2018
  2. TIROSINT [Suspect]
     Active Substance: LEVOTHYROXINE SODIUM
     Indication: THYROIDECTOMY
     Dosage: 75MCG DAILY
     Route: 048
     Dates: start: 2014
  3. TIROSINT [Suspect]
     Active Substance: LEVOTHYROXINE SODIUM
     Indication: THYROIDECTOMY
     Dosage: ONE 75MCG CAPSULE DAILY AND TWO 50MCG CAPSULES A WEEK
     Route: 048
     Dates: start: 2018

REACTIONS (4)
  - Drug level below therapeutic [Unknown]
  - Alopecia [Recovering/Resolving]
  - Blood thyroid stimulating hormone increased [Unknown]
  - Nail disorder [Recovering/Resolving]
